FAERS Safety Report 16557124 (Version 1)
Quarter: 2019Q3

REPORT INFORMATION
  Report Type: Spontaneous
  Country: CA (occurrence: CA)
  Receive Date: 20190711
  Receipt Date: 20190711
  Transmission Date: 20191004
  Serious: Yes (Hospitalization, Other)
  Sender: FDA-Public Use
  Company Number: CA-SA-2019SA187000

PATIENT
  Age: 25 Year
  Sex: Male

DRUGS (5)
  1. NICOTINE. [Suspect]
     Active Substance: NICOTINE
  2. CAFFEINE. [Suspect]
     Active Substance: CAFFEINE
  3. CLOZAPINE. [Suspect]
     Active Substance: CLOZAPINE
     Dosage: 200 MG WITHIN 3 DAYS
  4. CLOZAPINE. [Suspect]
     Active Substance: CLOZAPINE
     Dosage: 12.5 UNK
  5. CLOZAPINE. [Suspect]
     Active Substance: CLOZAPINE
     Indication: SCHIZOAFFECTIVE DISORDER
     Dosage: 125 MG
     Dates: start: 201512

REACTIONS (10)
  - C-reactive protein increased [Recovered/Resolved]
  - Troponin increased [Recovered/Resolved]
  - Myocarditis [Recovered/Resolved]
  - Hypotension [Recovered/Resolved]
  - Influenza like illness [Recovered/Resolved]
  - Pyrexia [Recovered/Resolved]
  - Withdrawal syndrome [Recovered/Resolved]
  - Tachycardia [Recovered/Resolved]
  - Headache [Recovered/Resolved]
  - Nausea [Recovered/Resolved]
